FAERS Safety Report 9822309 (Version 2)
Quarter: 2014Q1

REPORT INFORMATION
  Report Type: Report from Study
  Country: US (occurrence: US)
  Receive Date: 20140116
  Receipt Date: 20140226
  Transmission Date: 20141002
  Serious: Yes (Hospitalization, Other)
  Sender: FDA-Public Use
  Company Number: US-US-EMD SERONO, INC.-7261568

PATIENT
  Age: 79 Year
  Sex: Female

DRUGS (1)
  1. REBIF [Suspect]
     Indication: PRODUCT USED FOR UNKNOWN INDICATION
     Route: 058
     Dates: start: 20050701

REACTIONS (5)
  - Squamous cell carcinoma of skin [Unknown]
  - Vulval cancer [Unknown]
  - Lymphoma [Not Recovered/Not Resolved]
  - Breast cancer [Unknown]
  - Asthenia [Recovering/Resolving]
